FAERS Safety Report 7756263-8 (Version None)
Quarter: 2011Q3

REPORT INFORMATION
  Report Type: 
  Country: None (occurrence: None)
  Receive Date: 20110916
  Receipt Date: 20110914
  Transmission Date: 20111222
  Serious: Yes (Hospitalization)
  Sender: FDA-Public Use
  Company Number: AU-ROCHE-726692

PATIENT
  Sex: Male
  Weight: 61.7 kg

DRUGS (8)
  1. LOPERAMIDE [Concomitant]
     Indication: DIARRHOEA
     Route: 048
     Dates: start: 20100801
  2. DEXAMETHASONE [Concomitant]
     Indication: CHEMOTHERAPY
     Dosage: 8 MG IV STAT, 4 MG ORAL, FREQUENCY: DAILY FOR TWO DAYS FOLLOWING CHEMOTHERAPY
     Dates: start: 20100816, end: 20100902
  3. OXALIPLATIN [Suspect]
     Indication: RECTAL CANCER
     Dosage: SCHEDULE: 50 MG/M2 IV ON D 1, 8, 15, 22 AND 29.  LAST DOSE PRIOR TO SAE: 30 AUGUST 2010.
     Route: 042
     Dates: start: 20100816
  4. CAPECITABINE [Suspect]
     Indication: RECTAL CANCER
     Dosage: SCHEDULE: 825 MG/M2, BID, D 1-33 W/O WEEKENDS + OPTIONAL BOOST. LAST DOSE PRIOR TO SAE: 27 AUG 2010
     Route: 048
     Dates: start: 20100816
  5. METOCLOPRAMIDE [Concomitant]
     Indication: CHEMOTHERAPY
     Dosage: FREQUENCY: FOUR TIMES A DAY FOR 5 DAYS
     Route: 048
     Dates: start: 20100816, end: 20101005
  6. GRANISETRON [Concomitant]
     Indication: CHEMOTHERAPY
     Dosage: 3 MG IV STAT, 2 MG ORAL, FREQUENCY: TWO DAYS FOLLOWING CHEMOTHERAPY.
     Dates: start: 20100516, end: 20100902
  7. CANDESARTAN CILEXETIL [Concomitant]
     Indication: HYPERTENSION
     Route: 048
  8. FOLIC ACID [Concomitant]
     Route: 048
     Dates: start: 20100801, end: 20100921

REACTIONS (1)
  - ENTEROCOLITIS [None]
